FAERS Safety Report 7246946-0 (Version None)
Quarter: 2011Q1

REPORT INFORMATION
  Report Type: 
  Country: None (occurrence: None)
  Receive Date: 20110127
  Receipt Date: 20110121
  Transmission Date: 20110831
  Serious: Yes (Hospitalization)
  Sender: FDA-Public Use
  Company Number: US-B.I. PHARMACEUTICALS,INC./RIDGEFIELD-2011-BP-01475BP

PATIENT
  Sex: Male

DRUGS (5)
  1. PRAVASTATIN [Concomitant]
     Indication: PROPHYLAXIS
  2. METFORMIN [Concomitant]
     Indication: GLUCOSE TOLERANCE IMPAIRED
  3. SPIRIVA [Suspect]
     Indication: CHRONIC OBSTRUCTIVE PULMONARY DISEASE
     Dosage: 18 MCG
     Route: 055
     Dates: start: 20060101
  4. TAMSULOSIN HCL [Concomitant]
     Indication: PROSTATIC DISORDER
  5. NAPROXEN [Concomitant]
     Indication: ARTHRITIS

REACTIONS (3)
  - CHEST PAIN [None]
  - HYPERTENSION [None]
  - DRY MOUTH [None]
